FAERS Safety Report 4382490-6 (Version None)
Quarter: 2004Q2

REPORT INFORMATION
  Report Type: 
  Country: None (occurrence: None)
  Receive Date: 20040610
  Receipt Date: 20040526
  Transmission Date: 20050107
  Serious: Yes (Life-Threatening, Hospitalization)
  Sender: FDA-Public Use
  Company Number: 2004-02012

PATIENT
  Age: 63 Year
  Sex: Male

DRUGS (1)
  1. IMMUCYST (BCG-IT (CONNAUGHT) ), AVENTIS PASTEAUR LTD., [Suspect]
     Indication: BLADDER CANCER
     Dates: start: 20040428

REACTIONS (2)
  - HAEMATURIA [None]
  - SEPSIS [None]
